FAERS Safety Report 5959573-X (Version None)
Quarter: 2008Q4

REPORT INFORMATION
  Report Type: 
  Country: None (occurrence: None)
  Receive Date: 20081120
  Receipt Date: 20081113
  Transmission Date: 20090506
  Serious: Yes (Disabling)
  Sender: FDA-Public Use
  Company Number: US-JNJFOC-20081103082

PATIENT
  Age: 78 Year
  Sex: Male

DRUGS (1)
  1. LEVAQUIN [Suspect]
     Indication: BACTERIAL INFECTION

REACTIONS (4)
  - FOOT DEFORMITY [None]
  - MUSCLE MASS [None]
  - TENDON RUPTURE [None]
  - TENDONITIS [None]
